FAERS Safety Report 4721497-3 (Version None)
Quarter: 2005Q3

REPORT INFORMATION
  Report Type: 
  Country: None (occurrence: None)
  Receive Date: 20050721
  Receipt Date: 20041018
  Transmission Date: 20060218
  Serious: No
  Sender: FDA-Public Use
  Company Number: US-BRISTOL-MYERS SQUIBB COMPANY-12736872

PATIENT
  Age: 42 Year
  Sex: Male
  Weight: 172 kg

DRUGS (13)
  1. COUMADIN [Suspect]
     Dosage: INITIATED 1 + 1/2 YEARS AGO
     Route: 048
  2. LANTUS [Suspect]
     Dosage: INJECTABLE; RECENTLY INITIATED DAILY APPROXIMATELY 4 MONTHS AGO
  3. GLIPIZIDE [Concomitant]
     Dosage: TAKEN DAILY FOR SEVERAL YEARS
  4. PROZAC [Concomitant]
     Dosage: TAKEN DAILY FOR SEVERAL YEARS
  5. TRICOR [Concomitant]
     Dosage: TAKEN DAILY FOR SEVERAL YEARS
  6. XENICAL [Concomitant]
     Dosage: TAKEN DAILY FOR SEVERAL YEARS
  7. TOPAMAX [Concomitant]
     Dosage: TAKEN DAILY FOR SEVERAL YEARS
  8. CRESTOR [Concomitant]
     Dosage: TAKEN DAILY FOR SEVERAL YEARS
  9. GLUCOPHAGE [Concomitant]
     Dosage: TAKEN DAILY FOR SEVERAL YEARS
  10. ZESTRIL [Concomitant]
     Dosage: TAKEN DAILY FOR SEVERAL YEARS
  11. NAPROXEN [Concomitant]
     Dosage: TAKEN DAILY FOR SEVERAL YEARS
  12. DIOVAN [Concomitant]
     Dosage: TAKEN DAILY FOR SEVERAL YEARS
  13. ZETIA [Concomitant]
     Dosage: TAKEN DAILY FOR SEVERAL YEARS

REACTIONS (1)
  - INJECTION SITE HAEMORRHAGE [None]
